FAERS Safety Report 9621209 (Version 1)
Quarter: 2013Q4

REPORT INFORMATION
  Report Type: Report from Study
  Country: DE (occurrence: DE)
  Receive Date: 20131015
  Receipt Date: 20131015
  Transmission Date: 20140711
  Serious: Yes (Other)
  Sender: FDA-Public Use
  Company Number: DE-JNJFOC-20131006818

PATIENT
  Age: 6 Decade
  Sex: Female

DRUGS (9)
  1. XARELTO [Suspect]
     Indication: EMBOLISM VENOUS
     Route: 048
     Dates: start: 20130325, end: 20130415
  2. XARELTO [Suspect]
     Indication: EMBOLISM VENOUS
     Route: 048
     Dates: start: 20130416, end: 20130925
  3. XARELTO [Suspect]
     Indication: DEEP VEIN THROMBOSIS
     Route: 048
     Dates: start: 20130325, end: 20130415
  4. XARELTO [Suspect]
     Indication: DEEP VEIN THROMBOSIS
     Route: 048
     Dates: start: 20130416, end: 20130925
  5. HEPARIN [Concomitant]
     Route: 065
     Dates: start: 20130323, end: 20130325
  6. L-THYROXIN [Concomitant]
     Route: 065
     Dates: start: 200012
  7. BISOPROLOL [Concomitant]
     Route: 065
     Dates: start: 2006
  8. TREVILOR [Concomitant]
     Route: 065
     Dates: start: 2005
  9. QUILONUM [Concomitant]
     Route: 065
     Dates: start: 2006

REACTIONS (2)
  - Anaemia [Recovering/Resolving]
  - Depression [Recovering/Resolving]
